FAERS Safety Report 26088733 (Version 1)
Quarter: 2025Q4

REPORT INFORMATION
  Report Type: Spontaneous
  Country: EU (occurrence: EU)
  Receive Date: 20251125
  Receipt Date: 20251125
  Transmission Date: 20260117
  Serious: Yes (Other)
  Sender: TAKEDA
  Company Number: EU-TAKEDA-2025TUS102718

PATIENT
  Sex: Male

DRUGS (2)
  1. HYQVIA [Suspect]
     Active Substance: HUMAN IMMUNOGLOBULIN G\HYALURONIDASE (HUMAN RECOMBINANT)
     Indication: Hypogammaglobulinaemia
     Dosage: 40 GRAM, MONTHLY
     Dates: start: 202506
  2. HYQVIA [Suspect]
     Active Substance: HUMAN IMMUNOGLOBULIN G\HYALURONIDASE (HUMAN RECOMBINANT)
     Indication: Immunoglobulins abnormal
     Dosage: 20 GRAM

REACTIONS (5)
  - Hypogammaglobulinaemia [Unknown]
  - Product quality issue [Unknown]
  - Arthritis [Unknown]
  - Neuritis [Unknown]
  - Muscle strength abnormal [Unknown]
